FAERS Safety Report 4990824-4 (Version None)
Quarter: 2006Q2

REPORT INFORMATION
  Report Type: 
  Country: None (occurrence: None)
  Receive Date: 20060428
  Receipt Date: 20060418
  Transmission Date: 20061013
  Serious: Yes (Hospitalization, Other)
  Sender: FDA-Public Use
  Company Number: JP_050506498

PATIENT
  Age: 65 Year
  Sex: Male
  Weight: 56 kg

DRUGS (11)
  1. GEMZAR [Suspect]
     Indication: PANCREATIC CARCINOMA STAGE IV
     Dosage: 1600 MG, OTHER, INTRAVENOUS
     Route: 042
     Dates: start: 20050420, end: 20060112
  2. NASEA (RAMOSETRON HYDROCHLORIDE) [Concomitant]
  3. URSO (URSODEOXYCHOLIC ACID) TABLET [Concomitant]
  4. LENDORM [Concomitant]
  5. ALESION (EPINASTINE HYDROCHLORIDE) TABLET [Concomitant]
  6. FOIPAN (CAMOSTAT MESILATE) TABLET [Concomitant]
  7. DIPHENHYDRAMINE HYDROCHLORIDE (DIPHENHYDRAMINE HYDROCHLORIDE) TABLET [Concomitant]
  8. ORGADRONE (DEXAMETHASONE SODIUM PHOSPHATE) [Concomitant]
  9. GASTER (FAMOTIDINE) VIAL [Concomitant]
  10. PARIET (RABEPRAZOLE SODIUM) TABLET [Concomitant]
  11. DIOVAN [Concomitant]

REACTIONS (18)
  - ABDOMINAL PAIN UPPER [None]
  - ACUTE MYOCARDIAL INFARCTION [None]
  - ARTERIOSCLEROSIS CORONARY ARTERY [None]
  - BLOOD ALBUMIN DECREASED [None]
  - BONE MARROW FAILURE [None]
  - COLD SWEAT [None]
  - CORONARY ARTERY DISEASE [None]
  - DECREASED APPETITE [None]
  - DIARRHOEA [None]
  - DRUG ERUPTION [None]
  - GASTRIC ULCER [None]
  - HYPOPROTEINAEMIA [None]
  - OEDEMA [None]
  - PANCREATITIS [None]
  - PIGMENTATION DISORDER [None]
  - PLATELET COUNT DECREASED [None]
  - PLATELET COUNT INCREASED [None]
  - WEIGHT INCREASED [None]
